FAERS Safety Report 25196525 (Version 2)
Quarter: 2025Q2

REPORT INFORMATION
  Report Type: Spontaneous
  Country: US (occurrence: US)
  Receive Date: 20250415
  Receipt Date: 20250425
  Transmission Date: 20250717
  Serious: Yes (Life-Threatening, Hospitalization)
  Sender: TEVA
  Company Number: US-TEVA-VS-3319941

PATIENT
  Age: 54 Year
  Sex: Female

DRUGS (2)
  1. NALOXONE [Suspect]
     Active Substance: NALOXONE
     Indication: Overdose
     Route: 065
  2. TIANEPTINE [Suspect]
     Active Substance: TIANEPTINE
     Indication: Borderline personality disorder
     Route: 048

REACTIONS (4)
  - Overdose [Unknown]
  - Off label use [Unknown]
  - Atrial fibrillation [Recovering/Resolving]
  - Drug ineffective [Unknown]
